FAERS Safety Report 11146619 (Version 1)
Quarter: 2015Q2

REPORT INFORMATION
  Report Type: Spontaneous
  Country: DE (occurrence: DE)
  Receive Date: 20150528
  Receipt Date: 20150528
  Transmission Date: 20150821
  Serious: Yes (Life-Threatening, Hospitalization, Other)
  Sender: FDA-Public Use
  Company Number: GXKR2015DE002530

PATIENT
  Sex: Female

DRUGS (4)
  1. DEXAMETASON//DEXAMETHASONE [Concomitant]
     Dosage: 16 MG, UNK
     Route: 065
  2. RANITIDIN [Concomitant]
     Active Substance: RANITIDINE HYDROCHLORIDE
     Dosage: 50 MG, UNK
  3. NEOTAXAN [Suspect]
     Active Substance: PACLITAXEL
     Indication: BREAST CANCER
     Dosage: 80 MG/M2, QW
     Route: 041
  4. CLEMASTIN [Concomitant]
     Active Substance: CLEMASTINE
     Dosage: 2 MG, UNK
     Route: 065

REACTIONS (2)
  - Cardiac arrest [Unknown]
  - Hypersensitivity [Unknown]
